FAERS Safety Report 17523644 (Version 1)
Quarter: 2020Q1

REPORT INFORMATION
  Report Type: Spontaneous
  Country: US (occurrence: US)
  Receive Date: 20200310
  Receipt Date: 20200310
  Transmission Date: 20200409
  Serious: No
  Sender: FDA-Public Use
  Company Number: US-PFIZER INC-2020102663

PATIENT
  Age: 70 Year
  Sex: Female
  Weight: 88.45 kg

DRUGS (1)
  1. PREMARIN [Suspect]
     Active Substance: ESTROGENS, CONJUGATED
     Indication: HORMONE THERAPY
     Dosage: UNKNOWN

REACTIONS (2)
  - Back pain [Recovered/Resolved]
  - Arthralgia [Unknown]
